FAERS Safety Report 10461255 (Version 1)
Quarter: 2014Q3

REPORT INFORMATION
  Report Type: Spontaneous
  Country: US (occurrence: None)
  Receive Date: 20140917
  Receipt Date: 20140917
  Transmission Date: 20150326
  Serious: Yes (Hospitalization)
  Sender: FDA-Public Use
  Company Number: None

PATIENT
  Age: 91 Year
  Sex: Female
  Weight: 72.58 kg

DRUGS (8)
  1. ISOSORBID MONONITRITE [Concomitant]
  2. POTASSIUM CHLORIDE. [Concomitant]
     Active Substance: POTASSIUM CHLORIDE
  3. METOPROLOL [Concomitant]
     Active Substance: METOPROLOL
  4. METOLAZONE. [Suspect]
     Active Substance: METOLAZONE
     Indication: FLUID RETENTION
     Route: 048
     Dates: start: 20140807, end: 20140810
  5. FOLIC ACID. [Concomitant]
     Active Substance: FOLIC ACID
  6. LASIX [Concomitant]
     Active Substance: FUROSEMIDE
  7. WARFARIN [Concomitant]
     Active Substance: WARFARIN
  8. METOPROLOL SUCCINATE. [Concomitant]
     Active Substance: METOPROLOL SUCCINATE

REACTIONS (2)
  - Loss of consciousness [None]
  - Nausea [None]

NARRATIVE: CASE EVENT DATE: 20140811
